FAERS Safety Report 25153695 (Version 2)
Quarter: 2025Q2

REPORT INFORMATION
  Report Type: Spontaneous
  Country: US (occurrence: US)
  Receive Date: 20250403
  Receipt Date: 20250527
  Transmission Date: 20250716
  Serious: Yes (Other)
  Sender: CSL BEHRING
  Company Number: US-BEH-2025200423

PATIENT
  Age: 49 Year
  Sex: Female
  Weight: 71.202 kg

DRUGS (2)
  1. HIZENTRA [Suspect]
     Active Substance: HUMAN IMMUNOGLOBULIN G
     Indication: Immunodeficiency common variable
     Dosage: 10 G, QW
     Route: 058
     Dates: start: 202412
  2. EPINEPHRINE [Concomitant]
     Active Substance: EPINEPHRINE

REACTIONS (6)
  - Nephrolithiasis [Unknown]
  - Urine output decreased [Unknown]
  - Dyspnoea [Unknown]
  - Weight increased [Unknown]
  - Weight increased [Unknown]
  - Urine output decreased [Unknown]

NARRATIVE: CASE EVENT DATE: 20250225
